FAERS Safety Report 7226879-6 (Version None)
Quarter: 2011Q1

REPORT INFORMATION
  Report Type: 
  Country: None (occurrence: None)
  Receive Date: 20110114
  Receipt Date: 20101011
  Transmission Date: 20110831
  Serious: No
  Sender: FDA-Public Use
  Company Number: US-BAYER-201022714BCC

PATIENT
  Sex: Female
  Weight: 68.027 kg

DRUGS (1)
  1. ALEVE [Suspect]
     Indication: HEADACHE
     Dosage: COUNT BOTTLE 250S
     Route: 048
     Dates: start: 20101011

REACTIONS (1)
  - HEADACHE [None]
